FAERS Safety Report 8906419 (Version 1)
Quarter: 2012Q4

REPORT INFORMATION
  Report Type: Spontaneous
  Country: US (occurrence: None)
  Receive Date: 20121109
  Receipt Date: 20121109
  Transmission Date: 20130627
  Serious: Yes (Other)
  Sender: FDA-Public Use
  Company Number: None

PATIENT
  Age: 54 Year
  Sex: Female
  Weight: 63.05 kg

DRUGS (2)
  1. BUPROPION HCL XL [Suspect]
     Route: 048
     Dates: start: 20040224
  2. BUPROPION HCL XL [Suspect]
     Dates: start: 20081018, end: 20090218

REACTIONS (3)
  - Depression [None]
  - Bipolar disorder [None]
  - Product substitution issue [None]
